FAERS Safety Report 22114419 (Version 3)
Quarter: 2023Q2

REPORT INFORMATION
  Report Type: Spontaneous
  Country: JP (occurrence: JP)
  Receive Date: 20230320
  Receipt Date: 20230413
  Transmission Date: 20230721
  Serious: Yes (Hospitalization)
  Sender: FDA-Public Use
  Company Number: JP-002147023-NVSJ2023JP004658

PATIENT
  Age: 85 Year
  Sex: Male

DRUGS (10)
  1. NEORAL [Suspect]
     Active Substance: CYCLOSPORINE
     Indication: Product used for unknown indication
     Dosage: UNK, NO TREATMENT
     Route: 065
  2. CYCLOSPORINE [Suspect]
     Active Substance: CYCLOSPORINE
     Indication: Dermatitis atopic
     Dosage: UNK
     Route: 065
  3. CYCLOSPORINE [Suspect]
     Active Substance: CYCLOSPORINE
     Dosage: UNK
     Route: 065
  4. CYCLOSPORINE [Concomitant]
     Active Substance: CYCLOSPORINE
     Indication: Product used for unknown indication
     Dosage: UNK
     Route: 065
  5. OLOPATADINE HYDROCHLORIDE [Concomitant]
     Active Substance: OLOPATADINE HYDROCHLORIDE
     Indication: Product used for unknown indication
     Dosage: 10 MG, BID
     Route: 048
  6. LEVOCETIRIZINE HYDROCHLORIDE [Concomitant]
     Active Substance: LEVOCETIRIZINE HYDROCHLORIDE
     Indication: Product used for unknown indication
     Dosage: 5 MG, QD
     Route: 048
  7. RUPAFIN [Concomitant]
     Active Substance: RUPATADINE FUMARATE
     Indication: Product used for unknown indication
     Dosage: 20 MG, BEFORE SLEEP
     Route: 048
  8. HERBALS [Concomitant]
     Active Substance: HERBALS
     Indication: Product used for unknown indication
     Dosage: UNK
     Route: 065
  9. ELOBIXIBAT [Concomitant]
     Active Substance: ELOBIXIBAT
     Indication: Product used for unknown indication
     Dosage: 10 MG, AT NIGHT
     Route: 048
  10. FAMOTIDINE [Concomitant]
     Active Substance: FAMOTIDINE
     Indication: Product used for unknown indication
     Dosage: 20 MG, BID, IN THE MORNING AND NIGHT
     Route: 048

REACTIONS (3)
  - Duodenitis [Recovered/Resolved]
  - Abdominal pain [Unknown]
  - Vomiting [Unknown]
